FAERS Safety Report 5245496-0 (Version None)
Quarter: 2007Q1

REPORT INFORMATION
  Report Type: 
  Country: None (occurrence: None)
  Receive Date: 20070223
  Receipt Date: 20070126
  Transmission Date: 20070707
  Serious: Yes (Hospitalization, Other)
  Sender: FDA-Public Use
  Company Number: US-PFIZER INC-2006071742

PATIENT
  Sex: Male

DRUGS (1)
  1. BEXTRA [Suspect]
     Indication: PAIN
     Route: 048

REACTIONS (5)
  - ANGINA PECTORIS [None]
  - ANXIETY [None]
  - AORTIC INJURY [None]
  - ENDOCARDITIS [None]
  - MYOCARDIAL INFARCTION [None]
